FAERS Safety Report 4502844-4 (Version None)
Quarter: 2004Q4

REPORT INFORMATION
  Report Type: 
  Country: None (occurrence: None)
  Receive Date: 20041117
  Receipt Date: 20041025
  Transmission Date: 20050328
  Serious: Yes (Other)
  Sender: FDA-Public Use
  Company Number: JP-JNJFOC-20040800383

PATIENT
  Sex: Female

DRUGS (7)
  1. DUROTEP [Suspect]
     Indication: CANCER PAIN
     Route: 062
     Dates: start: 20040427
  2. MORPHINE HYDROCHLORIDE [Suspect]
     Indication: CANCER PAIN
     Route: 054
     Dates: start: 20040427, end: 20040429
  3. SENNA LEAF [Concomitant]
     Indication: CONSTIPATION
     Route: 049
     Dates: start: 20040414
  4. BISACODYL [Concomitant]
     Indication: CONSTIPATION
     Dosage: 2 TO 3 TIMES PER DAY
     Route: 054
     Dates: start: 20040414
  5. DOMPERIDONE [Concomitant]
     Dosage: 60-120 MG PER DAY
     Route: 054
     Dates: start: 20040430
  6. DOMPERIDONE [Concomitant]
     Dosage: 120-180 MG
     Route: 054
     Dates: start: 20040430
  7. LOXOPROFEN SODIUM [Concomitant]
     Indication: CANCER PAIN
     Route: 049

REACTIONS (4)
  - ATRIAL FIBRILLATION [None]
  - CHEST DISCOMFORT [None]
  - DRUG INTERACTION [None]
  - VOMITING [None]
